FAERS Safety Report 4933317-2 (Version None)
Quarter: 2006Q1

REPORT INFORMATION
  Report Type: 
  Country: None (occurrence: None)
  Receive Date: 20060306
  Receipt Date: 20051031
  Transmission Date: 20060701
  Serious: Yes (Hospitalization, Congenital Anomaly)
  Sender: FDA-Public Use
  Company Number: US-MERCK-0511USA00241

PATIENT
  Age: 73 Year
  Sex: Female
  Weight: 75 kg

DRUGS (25)
  1. IBUPROFEN [Concomitant]
     Route: 065
     Dates: start: 20010301, end: 20011201
  2. COLCHICINE [Concomitant]
     Route: 065
     Dates: start: 20010801, end: 20010901
  3. CELEBREX [Concomitant]
     Route: 065
     Dates: start: 20011001, end: 20011201
  4. VIOXX [Suspect]
     Indication: ARTHRITIS
     Route: 048
     Dates: start: 19990601, end: 20010223
  5. VIOXX [Suspect]
     Route: 048
     Dates: start: 20011201, end: 20031101
  6. VIOXX [Suspect]
     Indication: PAIN
     Route: 048
     Dates: start: 19990601, end: 20010223
  7. VIOXX [Suspect]
     Route: 048
     Dates: start: 20011201, end: 20031101
  8. ASPIRIN [Concomitant]
     Route: 065
     Dates: start: 20010101, end: 20010301
  9. ASPIRIN [Concomitant]
     Route: 065
     Dates: start: 20010401, end: 20011101
  10. ZOCOR [Concomitant]
     Indication: BLOOD CHOLESTEROL INCREASED
     Route: 065
     Dates: start: 20011201, end: 20020101
  11. NORVASC [Concomitant]
     Indication: CARDIAC DISORDER
     Route: 065
     Dates: start: 20010501, end: 20011201
  12. AVANDIA [Concomitant]
     Indication: DIABETES MELLITUS
     Route: 065
     Dates: start: 20010401, end: 20011201
  13. FOSAMAX [Concomitant]
     Indication: OSTEOPOROSIS
     Route: 065
     Dates: start: 20010401, end: 20011001
  14. RANITIDINE [Concomitant]
     Indication: GASTROOESOPHAGEAL REFLUX DISEASE
     Route: 065
     Dates: start: 20010401, end: 20010601
  15. GLUCOPHAGE [Concomitant]
     Indication: DIABETES MELLITUS
     Route: 065
     Dates: start: 20010401, end: 20010701
  16. GLYBURIDE [Concomitant]
     Indication: DIABETES MELLITUS
     Route: 065
     Dates: start: 20010101, end: 20010301
  17. MINITRAN [Concomitant]
     Indication: CARDIAC DISORDER
     Route: 065
     Dates: start: 20011001, end: 20011101
  18. ISOSORBIDE MONONITRATE [Concomitant]
     Indication: HYPERTENSION
     Route: 065
     Dates: start: 20010401, end: 20010701
  19. NITROQUICK [Concomitant]
     Indication: CARDIAC DISORDER
     Route: 065
     Dates: start: 20010301, end: 20011001
  20. NITRO-DUR [Concomitant]
     Indication: CARDIAC DISORDER
     Route: 065
     Dates: start: 20010101, end: 20010301
  21. FUROSEMIDE [Concomitant]
     Indication: HYPERTENSION
     Route: 065
     Dates: start: 20010101, end: 20011101
  22. DILTIAZEM MALATE [Concomitant]
     Indication: HYPERTENSION
     Route: 065
     Dates: start: 20010101, end: 20010401
  23. DIOVAN [Concomitant]
     Indication: HYPERTENSION
     Route: 065
     Dates: start: 20010101, end: 20010401
  24. ELAVIL [Concomitant]
     Indication: PAIN
     Route: 065
     Dates: start: 20010101, end: 20011201
  25. PLAVIX [Concomitant]
     Indication: MYOCARDIAL INFARCTION
     Route: 065
     Dates: start: 20010401, end: 20011101

REACTIONS (21)
  - ANXIETY [None]
  - ARTERIOSCLEROSIS [None]
  - BLOOD CHOLESTEROL INCREASED [None]
  - BLOOD TRIGLYCERIDES INCREASED [None]
  - CARDIAC FAILURE CONGESTIVE [None]
  - CEREBROVASCULAR ACCIDENT [None]
  - CORONARY ARTERY DISEASE [None]
  - DEPRESSION [None]
  - DIABETES MELLITUS [None]
  - DYSPEPSIA [None]
  - DYSPNOEA [None]
  - GASTROOESOPHAGEAL REFLUX DISEASE [None]
  - HEART DISEASE CONGENITAL [None]
  - HYPERTENSION [None]
  - HYPOXIA [None]
  - MYOCARDIAL INFARCTION [None]
  - NEOPLASM [None]
  - OBESITY [None]
  - OEDEMA [None]
  - OSTEOPOROSIS [None]
  - SLEEP APNOEA SYNDROME [None]
